FAERS Safety Report 11260879 (Version 25)
Quarter: 2022Q4

REPORT INFORMATION
  Report Type: Spontaneous
  Country: BR (occurrence: BR)
  Receive Date: 20150710
  Receipt Date: 20221226
  Transmission Date: 20230113
  Serious: Yes (Hospitalization, Other)
  Sender: FDA-Public Use
  Company Number: BR-GLAXOSMITHKLINE-BR2015GSK098504

PATIENT

DRUGS (7)
  1. BENLYSTA [Suspect]
     Active Substance: BELIMUMAB
     Indication: Systemic lupus erythematosus
     Dosage: UNK, CYC,6 AMPULES
     Route: 042
     Dates: start: 20150622
  2. BENLYSTA [Suspect]
     Active Substance: BELIMUMAB
     Dosage: 120 MG
     Route: 042
     Dates: start: 20210210
  3. FORMOTEROL FUMARATE [Suspect]
     Active Substance: FORMOTEROL FUMARATE
     Indication: Respiratory disorder
     Dosage: UNK
  4. VITAMIN D [Suspect]
     Active Substance: VITAMIN D NOS
     Indication: Respiratory disorder
     Dosage: UNK
  5. VITAMIN C [Suspect]
     Active Substance: ASCORBIC ACID
     Indication: Respiratory disorder
     Dosage: UNK
  6. ANNITA [Suspect]
     Active Substance: NITAZOXANIDE
     Indication: Respiratory disorder
     Dosage: UNK
  7. ASTRAZENECA COVID-19 VACCINE [Suspect]
     Active Substance: AZD-1222
     Indication: COVID-19 prophylaxis
     Dosage: UNK
     Dates: start: 202105

REACTIONS (45)
  - Pain [Recovered/Resolved]
  - Systemic lupus erythematosus [Unknown]
  - Urinary tract infection [Unknown]
  - Surgery [Unknown]
  - Burns third degree [Unknown]
  - Blister [Unknown]
  - Inflammation [Unknown]
  - Dermatitis [Not Recovered/Not Resolved]
  - Dermatitis bullous [Not Recovered/Not Resolved]
  - Immunodeficiency [Unknown]
  - Pneumonia [Unknown]
  - Productive cough [Unknown]
  - Hypersensitivity [Unknown]
  - Swelling face [Unknown]
  - Back pain [Not Recovered/Not Resolved]
  - Hypertension [Unknown]
  - Headache [Recovered/Resolved]
  - Hypoaesthesia [Unknown]
  - Skin mass [Not Recovered/Not Resolved]
  - COVID-19 [Recovered/Resolved]
  - Fibrin D dimer increased [Unknown]
  - Vocal cord thickening [Unknown]
  - Pyrexia [Unknown]
  - Dyspnoea [Recovered/Resolved]
  - Protein urine present [Unknown]
  - Skin infection [Recovered/Resolved]
  - Oropharyngeal pain [Recovered/Resolved]
  - Chills [Unknown]
  - Fatigue [Unknown]
  - Pigmentation disorder [Recovering/Resolving]
  - Wound [Recovering/Resolving]
  - Respiratory tract infection [Unknown]
  - Exposure to SARS-CoV-2 [Unknown]
  - Localised infection [Unknown]
  - General physical health deterioration [Unknown]
  - Lung disorder [Unknown]
  - Skin disorder [Unknown]
  - Sinusitis [Unknown]
  - Respiratory disorder [Unknown]
  - Therapeutic response unexpected [Unknown]
  - Therapy interrupted [Unknown]
  - Off label use [Unknown]
  - Inappropriate schedule of product administration [Unknown]
  - Circumstance or information capable of leading to medication error [Unknown]
  - Product dose omission issue [Not Recovered/Not Resolved]

NARRATIVE: CASE EVENT DATE: 20210101
